FAERS Safety Report 7310322-2 (Version None)
Quarter: 2011Q1

REPORT INFORMATION
  Report Type: 
  Country: None (occurrence: None)
  Receive Date: 20110224
  Receipt Date: 20101103
  Transmission Date: 20110831
  Serious: No
  Sender: FDA-Public Use
  Company Number: US-TYCO HEALTHCARE/MALLINCKRODT-T201002210

PATIENT
  Sex: Male

DRUGS (2)
  1. TECHNETIUM TC-99M [Suspect]
     Indication: BONE SCAN
     Dosage: 30 MCI, SINGLE
     Route: 042
     Dates: start: 20101027, end: 20101027
  2. TECHNESCAN [Suspect]
     Indication: BONE SCAN
     Dosage: UNK
     Dates: start: 20101027, end: 20101027

REACTIONS (2)
  - ABDOMINAL PAIN [None]
  - INJECTION SITE PAIN [None]
